FAERS Safety Report 18468875 (Version 3)
Quarter: 2021Q2

REPORT INFORMATION
  Report Type: Report from Study
  Country: CL (occurrence: CL)
  Receive Date: 20201105
  Receipt Date: 20210621
  Transmission Date: 20210717
  Serious: Yes (Hospitalization)
  Sender: FDA-Public Use
  Company Number: CL-TAKEDA-CL202029882

PATIENT
  Age: 10 Year
  Sex: Male
  Weight: 42.63 kg

DRUGS (5)
  1. IDURSULFASE [Suspect]
     Active Substance: IDURSULFASE
     Dosage: 0.5 MICROGRAM/KILOGRAM, 1/WEEK
     Route: 042
     Dates: start: 20200908, end: 20200908
  2. IDURSULFASE [Suspect]
     Active Substance: IDURSULFASE
     Dosage: 2 UNK, 1/WEEK
     Route: 042
  3. IDURSULFASE [Suspect]
     Active Substance: IDURSULFASE
     Dosage: 0.5 MICROGRAM/KILOGRAM, 1/WEEK
     Route: 042
     Dates: start: 20200928, end: 20200928
  4. IDURSULFASE [Suspect]
     Active Substance: IDURSULFASE
     Indication: MUCOPOLYSACCHARIDOSIS II
     Dosage: 2 UNK, 1/WEEK
     Route: 042
  5. IDURSULFASE [Suspect]
     Active Substance: IDURSULFASE
     Dosage: 0.5 MILLIGRAM/KILOGRAM, 1/WEEK
     Route: 042

REACTIONS (9)
  - Unevaluable event [Recovered/Resolved]
  - Infusion related reaction [Recovering/Resolving]
  - Erythema [Unknown]
  - Cough [Recovering/Resolving]
  - Infusion site induration [Unknown]
  - Rash [Recovering/Resolving]
  - Nasopharyngitis [Recovering/Resolving]
  - Administration site extravasation [Recovered/Resolved]
  - Respiratory rate increased [Recovering/Resolving]

NARRATIVE: CASE EVENT DATE: 20210531
